FAERS Safety Report 19763153 (Version 1)
Quarter: 2021Q3

REPORT INFORMATION
  Report Type: Spontaneous
  Country: US (occurrence: US)
  Receive Date: 20210827
  Receipt Date: 20210827
  Transmission Date: 20211014
  Serious: Yes (Death)
  Sender: FDA-Public Use
  Company Number: None

PATIENT
  Age: 66 Year
  Sex: Male
  Weight: 80 kg

DRUGS (1)
  1. REMDESIVIR (EUA) (REMDESIVIR (EUA)) [Suspect]
     Active Substance: REMDESIVIR
     Indication: COVID-19
     Dates: start: 20200517, end: 20200525

REACTIONS (7)
  - Haemoglobin decreased [None]
  - Upper gastrointestinal haemorrhage [None]
  - Acute respiratory failure [None]
  - Condition aggravated [None]
  - Blood urea increased [None]
  - Hypotension [None]
  - Nasogastric output abnormal [None]

NARRATIVE: CASE EVENT DATE: 20200525
